FAERS Safety Report 6859554-8 (Version None)
Quarter: 2010Q3

REPORT INFORMATION
  Report Type: 
  Country: None (occurrence: None)
  Receive Date: 20100719
  Receipt Date: 20080229
  Transmission Date: 20110219
  Serious: No
  Sender: FDA-Public Use
  Company Number: US-PFIZER INC-2008020178

PATIENT
  Sex: Female
  Weight: 45.4 kg

DRUGS (4)
  1. CHANTIX [Suspect]
  2. ZOLOFT [Concomitant]
  3. LYRICA [Concomitant]
  4. GLATIRAMER ACETATE [Concomitant]

REACTIONS (3)
  - DECREASED APPETITE [None]
  - NAUSEA [None]
  - THINKING ABNORMAL [None]
